FAERS Safety Report 9256983 (Version 1)
Quarter: 2013Q2

REPORT INFORMATION
  Report Type: Spontaneous
  Country: BR (occurrence: None)
  Receive Date: 20130424
  Receipt Date: 20130424
  Transmission Date: 20140414
  Serious: Yes (Other)
  Sender: FDA-Public Use
  Company Number: 2013-001191

PATIENT
  Age: 61 Year
  Sex: Female
  Weight: 48 kg

DRUGS (3)
  1. ACTONEL [Suspect]
     Indication: OSTEOPOROSIS
     Route: 048
     Dates: start: 20110312, end: 20121215
  2. RIVOTRIL ) CLONAZEPAM) [Concomitant]
  3. ARADOIS (LOSARTAN POTASSIUM) [Concomitant]

REACTIONS (7)
  - Hepatic neoplasm [None]
  - Abdominal discomfort [None]
  - Gastritis [None]
  - Nausea [None]
  - Retching [None]
  - Diarrhoea [None]
  - Weight decreased [None]
